FAERS Safety Report 4751375-5 (Version None)
Quarter: 2005Q3

REPORT INFORMATION
  Report Type: 
  Country: None (occurrence: None)
  Receive Date: 20050822
  Receipt Date: 20050809
  Transmission Date: 20060218
  Serious: Yes (Hospitalization)
  Sender: FDA-Public Use
  Company Number: HQWYE841210AUG05

PATIENT
  Age: 86 Year
  Sex: Female
  Weight: 72.64 kg

DRUGS (1)
  1. PREMARIN [Suspect]
     Dosage: 1 TABLET 1X PER 1 DAY ORAL
     Route: 048
     Dates: start: 19850101, end: 20050401

REACTIONS (2)
  - ANGIOPATHY [None]
  - COLITIS [None]
